FAERS Safety Report 8768575 (Version 1)
Quarter: 2012Q4

REPORT INFORMATION
  Report Type: Report from Study
  Country: CH (occurrence: GB)
  Receive Date: 20120906
  Receipt Date: 20120906
  Transmission Date: 20130627
  Serious: Yes (Other)
  Sender: FDA-Public Use
  Company Number: GB-ROCHE-1109368

PATIENT
  Age: 67 Year
  Sex: Female

DRUGS (4)
  1. RANIBIZUMAB [Suspect]
     Indication: AGE-RELATED MACULAR DEGENERATION
     Dosage: Last dose prior to SAE on 26/Jul/2012
     Route: 050
     Dates: start: 20120209
  2. CITALOPRAM [Concomitant]
     Indication: ANXIETY
     Route: 065
     Dates: start: 20120823
  3. CANDESARTAN [Concomitant]
     Indication: HYPERTENSION
     Route: 065
     Dates: start: 20120823
  4. LEVOTHYROXINE [Concomitant]
     Indication: HYPOTHYROIDISM
     Route: 065
     Dates: start: 20120823

REACTIONS (1)
  - Retinal haemorrhage [Unknown]
